FAERS Safety Report 15147342 (Version 1)
Quarter: 2018Q3

REPORT INFORMATION
  Report Type: Spontaneous
  Country: US (occurrence: US)
  Receive Date: 20180710
  Receipt Date: 20180710
  Transmission Date: 20181010
  Serious: Yes (Life-Threatening, Hospitalization, Disabling, Other)
  Sender: FDA-Public Use
  Company Number: None

PATIENT
  Age: 22 Year
  Sex: Male
  Weight: 79 kg

DRUGS (1)
  1. AIMOVIG [Suspect]
     Active Substance: ERENUMAB-AOOE
     Indication: MIGRAINE
     Route: 058
     Dates: start: 20180617

REACTIONS (7)
  - Liver injury [None]
  - Renal disorder [None]
  - Loss of consciousness [None]
  - Cardiac disorder [None]
  - Brain injury [None]
  - Seizure [None]
  - Muscle injury [None]

NARRATIVE: CASE EVENT DATE: 20180619
